FAERS Safety Report 5103225-5 (Version None)
Quarter: 2006Q3

REPORT INFORMATION
  Report Type: 
  Country: None (occurrence: None)
  Receive Date: 20060913
  Receipt Date: 20060818
  Transmission Date: 20061208
  Serious: Yes (Hospitalization)
  Sender: FDA-Public Use
  Company Number: PHEH2006US10598

PATIENT
  Age: 44 Year
  Sex: Female
  Weight: 117.91 kg

DRUGS (2)
  1. LAMISIL [Suspect]
     Dosage: 250 MG, UNK
     Route: 048
     Dates: start: 20060807, end: 20060815
  2. SULFUR [Suspect]

REACTIONS (9)
  - BLISTER [None]
  - DRUG INTERACTION [None]
  - DRY SKIN [None]
  - MOBILITY DECREASED [None]
  - PAIN IN EXTREMITY [None]
  - RASH [None]
  - SKIN BURNING SENSATION [None]
  - SKIN EXFOLIATION [None]
  - STEVENS-JOHNSON SYNDROME [None]
